FAERS Safety Report 25242908 (Version 1)
Quarter: 2025Q2

REPORT INFORMATION
  Report Type: Spontaneous
  Country: US (occurrence: US)
  Receive Date: 20250428
  Receipt Date: 20250428
  Transmission Date: 20250716
  Serious: No
  Sender: ABBVIE
  Company Number: US-ABBVIE-6241270

PATIENT

DRUGS (1)
  1. HUMIRA [Suspect]
     Active Substance: ADALIMUMAB
     Indication: Rheumatoid arthritis
     Route: 058
     Dates: end: 2025

REACTIONS (4)
  - Product storage error [Unknown]
  - Pharyngitis [Unknown]
  - Ear infection [Unknown]
  - Toothache [Unknown]

NARRATIVE: CASE EVENT DATE: 20250401
